FAERS Safety Report 8469836-4 (Version None)
Quarter: 2012Q2

REPORT INFORMATION
  Report Type: 
  Country: None (occurrence: None)
  Receive Date: 20120626
  Receipt Date: 20120619
  Transmission Date: 20120825
  Serious: Yes (Death, Hospitalization)
  Sender: FDA-Public Use
  Company Number: US-TEVA-344108USA

PATIENT
  Sex: Female

DRUGS (1)
  1. COPAXONE [Suspect]
     Indication: MULTIPLE SCLEROSIS
     Dates: start: 20110607, end: 20120519

REACTIONS (4)
  - DISORIENTATION [None]
  - URINARY TRACT INFECTION [None]
  - PNEUMONIA [None]
  - DEATH [None]
